FAERS Safety Report 10520225 (Version 1)
Quarter: 2014Q4

REPORT INFORMATION
  Report Type: Spontaneous
  Country: US (occurrence: US)
  Receive Date: 20141015
  Receipt Date: 20141015
  Transmission Date: 20150528
  Serious: No
  Sender: FDA-Public Use
  Company Number: US-BAYER-2014-152217

PATIENT
  Age: 74 Year
  Sex: Female
  Weight: 70 kg

DRUGS (1)
  1. ALEVE [Suspect]
     Active Substance: NAPROXEN SODIUM
     Indication: ANALGESIC THERAPY
     Dosage: 1 DF, ONE IN MORNING, ONE IN NIGHT AND ANOTHER IN MID DAY IF NEEDED
     Route: 048
     Dates: start: 2010

REACTIONS (2)
  - Incorrect drug administration duration [None]
  - Inappropriate schedule of drug administration [None]

NARRATIVE: CASE EVENT DATE: 2010
